FAERS Safety Report 7638924-4 (Version None)
Quarter: 2011Q3

REPORT INFORMATION
  Report Type: 
  Country: None (occurrence: None)
  Receive Date: 20110721
  Receipt Date: 20110706
  Transmission Date: 20111222
  Serious: Yes (Other)
  Sender: FDA-Public Use
  Company Number: AUR-APL-2011-01559

PATIENT
  Age: 60 Year
  Sex: Female
  Weight: 77 kg

DRUGS (5)
  1. LAMICTAL [Concomitant]
  2. CHANTIX [Suspect]
     Indication: SMOKING CESSATION THERAPY
     Dosage: ORAL
     Route: 048
     Dates: start: 20110401, end: 20110101
  3. VENLAFAXINE [Suspect]
     Indication: DEPRESSION
  4. PROPRANOLOL [Concomitant]
  5. BUSPAR [Concomitant]

REACTIONS (3)
  - ANGER [None]
  - RESTLESSNESS [None]
  - AGITATION [None]
